FAERS Safety Report 6469082-X (Version None)
Quarter: 2009Q4

REPORT INFORMATION
  Report Type: 
  Country: None (occurrence: None)
  Receive Date: 20091203
  Receipt Date: 20090715
  Transmission Date: 20100525
  Serious: Yes (Death, Other)
  Sender: FDA-Public Use
  Company Number: JP-ELI_LILLY_AND_COMPANY-JP200706000330

PATIENT
  Age: 59 Year
  Sex: Male

DRUGS (3)
  1. GEMZAR [Suspect]
     Indication: PANCREATIC CARCINOMA RECURRENT
     Dosage: DAY 1, 8, 15 / 4W
     Route: 042
     Dates: start: 20040201, end: 20040101
  2. GEMZAR [Suspect]
     Dosage: DAY 1, 15 / 4W
     Route: 042
     Dates: start: 20040101
  3. CORTICOSTEROIDS [Concomitant]
     Indication: PROPHYLAXIS

REACTIONS (4)
  - LEUKOPENIA [None]
  - MENINGITIS BACTERIAL [None]
  - NEOPLASM PROGRESSION [None]
  - THROMBOCYTOPENIA [None]
